FAERS Safety Report 15887335 (Version 3)
Quarter: 2019Q1

REPORT INFORMATION
  Report Type: Report from Study
  Country: CA (occurrence: CA)
  Receive Date: 20190130
  Receipt Date: 20190218
  Transmission Date: 20190417
  Serious: Yes (Other)
  Sender: FDA-Public Use
  Company Number: CA-ROCHE-2252245

PATIENT
  Age: 31 Year
  Sex: Female

DRUGS (6)
  1. TORADOL [Concomitant]
     Active Substance: KETOROLAC TROMETHAMINE
     Dosage: AS NEEDED ?INDICATION: ENDOMETRIOSIS PAIN
     Route: 065
     Dates: start: 201811
  2. OCREVUS [Suspect]
     Active Substance: OCRELIZUMAB
     Indication: RELAPSING-REMITTING MULTIPLE SCLEROSIS
     Route: 042
     Dates: start: 20190122
  3. CITALOPRAM [Concomitant]
     Active Substance: CITALOPRAM HYDROBROMIDE
     Indication: ANXIETY
     Route: 065
     Dates: start: 2016
  4. LORAZEPAM. [Concomitant]
     Active Substance: LORAZEPAM
  5. IBUPROFEN. [Concomitant]
     Active Substance: IBUPROFEN
     Indication: COSTOCHONDRITIS
     Dosage: EVERY 6 TO 8 HOURS FOR 2 DAYS AND NOW AS NEEDED
     Route: 065
  6. OCREVUS [Suspect]
     Active Substance: OCRELIZUMAB
     Route: 042

REACTIONS (7)
  - Costochondritis [Recovering/Resolving]
  - Fatigue [Unknown]
  - Pyrexia [Recovered/Resolved]
  - Pneumonia [Unknown]
  - Fatigue [Recovered/Resolved]
  - Chest pain [Recovering/Resolving]
  - Somnolence [Recovered/Resolved]

NARRATIVE: CASE EVENT DATE: 20190122
